FAERS Safety Report 9353332 (Version 1)
Quarter: 2013Q2

REPORT INFORMATION
  Report Type: Report from Study
  Country: US (occurrence: US)
  Receive Date: 20130618
  Receipt Date: 20130618
  Transmission Date: 20140414
  Serious: No
  Sender: FDA-Public Use
  Company Number: US-ALEXION-A201301367

PATIENT
  Age: 2 Year
  Sex: Female
  Weight: 11.9 kg

DRUGS (5)
  1. SOLIRIS [Suspect]
     Indication: HAEMOLYTIC URAEMIC SYNDROME
     Dosage: 600 MG, SINGLE
     Route: 042
     Dates: start: 20130429, end: 20130429
  2. SOLIRIS [Suspect]
     Dosage: 300 MG, Q2W
     Route: 042
     Dates: start: 20130505
  3. LISINOPRIL [Concomitant]
     Dosage: 3 MG, QD
  4. PENICILLIN VK [Concomitant]
     Dosage: 125 MG, BID
  5. COLACE [Concomitant]
     Dosage: 25 MG, QD

REACTIONS (7)
  - Crying [Unknown]
  - Constipation [Recovered/Resolved]
  - Nausea [Unknown]
  - Vomiting [Unknown]
  - Abdominal pain upper [None]
  - Gastritis [None]
  - Weight decreased [None]
